FAERS Safety Report 4701781-X (Version None)
Quarter: 2005Q2

REPORT INFORMATION
  Report Type: 
  Country: None (occurrence: None)
  Receive Date: 20050627
  Receipt Date: 20050613
  Transmission Date: 20051028
  Serious: Yes (Hospitalization, Other)
  Sender: FDA-Public Use
  Company Number: 2005088562

PATIENT
  Sex: Female
  Weight: 108.8633 kg

DRUGS (4)
  1. DILANTIN KAPSEAL [Suspect]
     Indication: CONVULSION
     Dosage: 250 MG (2 IN 1 D) ORAL
     Route: 048
     Dates: start: 19450101
  2. COUMADIN [Concomitant]
  3. TRANXENE [Concomitant]
  4. FOLIC ACID [Concomitant]

REACTIONS (21)
  - ANTICONVULSANT DRUG LEVEL BELOW THERAPEUTIC [None]
  - BALANCE DISORDER [None]
  - BONE DISORDER [None]
  - BONE OPERATION [None]
  - CARDIAC DISORDER [None]
  - CATARACT [None]
  - CONVULSION [None]
  - DRUG LEVEL FLUCTUATING [None]
  - FEELING ABNORMAL [None]
  - HEAD INJURY [None]
  - INFECTION [None]
  - LUNG DISORDER [None]
  - LUNG OPERATION [None]
  - MASTECTOMY [None]
  - NEOPLASM MALIGNANT [None]
  - PULMONARY THROMBOSIS [None]
  - RADIATION INJURY [None]
  - ROAD TRAFFIC ACCIDENT [None]
  - THROMBOSIS [None]
  - WEIGHT DECREASED [None]
  - WEIGHT INCREASED [None]
